FAERS Safety Report 10272945 (Version 1)
Quarter: 2014Q1

REPORT INFORMATION
  Report Type: Spontaneous
  Country: US (occurrence: None)
  Receive Date: 20140306
  Receipt Date: 20140306
  Transmission Date: 20141002
  Serious: Yes (Other)
  Sender: FDA-Public Use
  Company Number: 163-21880-13081318

PATIENT
  Age: 70 Year
  Sex: Female

DRUGS (3)
  1. REVLIMID (LENALIDOMIDE) (15 MILLIGRAM, CAPSULES) [Suspect]
     Indication: MANTLE CELL LYMPHOMA
     Route: 048
     Dates: start: 201307
  2. METHYLPREDNISOLONE (METHYLPREDNISOLONE) [Concomitant]
  3. RITUXIMAB (RITUXIMAB) [Concomitant]

REACTIONS (3)
  - Tumour flare [None]
  - Mantle cell lymphoma [None]
  - Disease progression [None]
